FAERS Safety Report 24168647 (Version 1)
Quarter: 2024Q3

REPORT INFORMATION
  Report Type: Spontaneous
  Country: US (occurrence: None)
  Receive Date: 20240802
  Receipt Date: 20240802
  Transmission Date: 20241016
  Serious: No
  Sender: Public
  Company Number: None

PATIENT
  Sex: 0

DRUGS (2)
  1. ESTRADIOL [Suspect]
     Active Substance: ESTRADIOL
  2. PROMETRIUM [Suspect]
     Active Substance: PROGESTERONE

REACTIONS (3)
  - Night sweats [None]
  - Haemorrhage [None]
  - Therapy change [None]
